FAERS Safety Report 18388445 (Version 1)
Quarter: 2020Q4

REPORT INFORMATION
  Report Type: Report from Study
  Country: ID (occurrence: ID)
  Receive Date: 20201015
  Receipt Date: 20201015
  Transmission Date: 20210114
  Serious: Yes (Death)
  Sender: FDA-Public Use
  Company Number: ID-SEATTLE GENETICS-2020SGN04594

PATIENT
  Age: 62 Year
  Sex: Female

DRUGS (1)
  1. BRENTUXIMAB VEDOTIN-MPI [Suspect]
     Active Substance: BRENTUXIMAB VEDOTIN
     Indication: HODGKIN^S DISEASE
     Dosage: 150 MG
     Route: 065
     Dates: start: 20200519

REACTIONS (1)
  - Death [Fatal]

NARRATIVE: CASE EVENT DATE: 20201012
